FAERS Safety Report 6445630-0 (Version None)
Quarter: 2009Q4

REPORT INFORMATION
  Report Type: 
  Country: None (occurrence: None)
  Receive Date: 20091118
  Receipt Date: 20091118
  Transmission Date: 20100525
  Serious: Yes (Hospitalization)
  Sender: FDA-Public Use
  Company Number: None

PATIENT
  Age: 60 Year
  Sex: Female
  Weight: 76.6579 kg

DRUGS (2)
  1. LITHIUM CARBONATE [Suspect]
     Indication: BIPOLAR DISORDER
     Dosage: 300 MG 2 X DAY
  2. SODIUM BICARBONATE [Suspect]
     Indication: RENAL DISORDER
     Dosage: 650 MG 3 X DAY

REACTIONS (2)
  - BIPOLAR I DISORDER [None]
  - INHIBITORY DRUG INTERACTION [None]
